FAERS Safety Report 5120101-2 (Version None)
Quarter: 2006Q4

REPORT INFORMATION
  Report Type: 
  Country: None (occurrence: None)
  Receive Date: 20061004
  Receipt Date: 20060925
  Transmission Date: 20070319
  Serious: Yes (Hospitalization, Other)
  Sender: FDA-Public Use
  Company Number: GB-JNJFOC-20060905532

PATIENT
  Sex: Female
  Weight: 102 kg

DRUGS (7)
  1. REMICADE [Suspect]
     Indication: RHEUMATOID ARTHRITIS
     Route: 042
  2. METHOTREXATE [Concomitant]
     Route: 065
  3. PREDNISOLONE [Concomitant]
     Route: 065
  4. DICLOFENAC [Concomitant]
     Route: 065
  5. FUROSEMIDE [Concomitant]
     Route: 065
  6. HRT [Concomitant]
     Route: 065
  7. LANSOPRAZOLE [Concomitant]
     Route: 065

REACTIONS (2)
  - LIMB INJURY [None]
  - ROAD TRAFFIC ACCIDENT [None]
